FAERS Safety Report 22042647 (Version 1)
Quarter: 2023Q1

REPORT INFORMATION
  Report Type: Other
  Country: AU (occurrence: AU)
  Receive Date: 20230228
  Receipt Date: 20230228
  Transmission Date: 20230418
  Serious: Yes (Other)
  Sender: FDA-Public Use
  Company Number: AU-CELLTRION INC.-2023AU004207

PATIENT

DRUGS (11)
  1. RITUXIMAB [Suspect]
     Active Substance: RITUXIMAB
     Indication: Product used for unknown indication
  2. CYCLOPHOSPHAMIDE [Suspect]
     Active Substance: CYCLOPHOSPHAMIDE
     Indication: Product used for unknown indication
  3. DOXORUBICIN [Suspect]
     Active Substance: DOXORUBICIN
     Indication: Product used for unknown indication
  4. ETOPOSIDE [Suspect]
     Active Substance: ETOPOSIDE
     Indication: Product used for unknown indication
  5. PREDNISOLONE [Suspect]
     Active Substance: PREDNISOLONE
     Indication: Product used for unknown indication
  6. VINCRISTINE [Suspect]
     Active Substance: VINCRISTINE
     Indication: Product used for unknown indication
  7. ASPIRIN [Concomitant]
     Active Substance: ASPIRIN
  8. INSULIN NOS [Concomitant]
     Active Substance: INSULIN NOS
  9. ROSUVASTATIN [Concomitant]
     Active Substance: ROSUVASTATIN
  10. IVABRADINE [Concomitant]
     Active Substance: IVABRADINE
  11. NEBIVOLOL [Concomitant]
     Active Substance: NEBIVOLOL

REACTIONS (2)
  - Cardiomyopathy [Unknown]
  - Acute myocardial infarction [Unknown]
